FAERS Safety Report 8482457-2 (Version None)
Quarter: 2012Q3

REPORT INFORMATION
  Report Type: 
  Country: None (occurrence: None)
  Receive Date: 20120702
  Receipt Date: 20120625
  Transmission Date: 20120928
  Serious: Yes (Other)
  Sender: FDA-Public Use
  Company Number: AU-GLAXOSMITHKLINE-B0811354A

PATIENT
  Age: 48 Year
  Sex: Female

DRUGS (4)
  1. BUDESONIDE [Suspect]
     Indication: SINUSITIS
     Dosage: 64UG PER DAY
     Route: 045
  2. ANTIBIOTICS [Suspect]
     Route: 065
  3. PREDNISONE [Suspect]
     Route: 048
  4. SALMETEROL/FLUTICASONE PROPIONATE [Suspect]
     Indication: ASTHMA
     Route: 055

REACTIONS (7)
  - DYSPHONIA [None]
  - SINUSITIS BACTERIAL [None]
  - VOCAL CORD INFLAMMATION [None]
  - DRUG INEFFECTIVE [None]
  - LARYNGITIS FUNGAL [None]
  - ASTHMA [None]
  - CONDITION AGGRAVATED [None]
